FAERS Safety Report 6243772-6 (Version None)
Quarter: 2009Q3

REPORT INFORMATION
  Report Type: 
  Country: None (occurrence: None)
  Receive Date: 20090618
  Receipt Date: 20090417
  Transmission Date: 20100115
  Serious: Yes (Other)
  Sender: FDA-Public Use
  Company Number: 627882

PATIENT
  Age: 58 Year
  Sex: Female

DRUGS (5)
  1. XENICAL [Suspect]
     Indication: WEIGHT CONTROL
     Dosage: 120 MG DAILY
     Dates: start: 20081201, end: 20090225
  2. LIPITOR [Concomitant]
  3. TARKA [Concomitant]
  4. DYAZIDE [Concomitant]
  5. VITAMINE D (VITAMIN D NOS) [Concomitant]

REACTIONS (3)
  - LIPASE INCREASED [None]
  - PANCREATITIS [None]
  - STEATORRHOEA [None]
